FAERS Safety Report 9716228 (Version 1)
Quarter: 2013Q4

REPORT INFORMATION
  Report Type: Report from Study
  Country: TR (occurrence: TR)
  Receive Date: 20131127
  Receipt Date: 20131127
  Transmission Date: 20140711
  Serious: Yes (Other)
  Sender: FDA-Public Use
  Company Number: TR-ROCHE-1306991

PATIENT
  Sex: 0

DRUGS (6)
  1. PEG-INTERFERON ALFA 2A [Suspect]
     Indication: HEPATITIS B
     Route: 065
  2. PEG-INTERFERON ALFA 2A [Suspect]
     Indication: HEPATITIS C
  3. RIBAVIRIN [Suspect]
     Indication: HEPATITIS B
     Route: 065
  4. RIBAVIRIN [Suspect]
     Indication: HEPATITIS C
  5. INTERFERON ALFA 2A [Suspect]
     Indication: HEPATITIS B
     Route: 065
  6. INTERFERON ALFA 2A [Suspect]
     Indication: HEPATITIS C

REACTIONS (6)
  - Anaemia [Unknown]
  - Major depression [Unknown]
  - Thrombocytopenia [Unknown]
  - Pyrexia [Unknown]
  - Fatigue [Unknown]
  - Pancytopenia [Unknown]
